FAERS Safety Report 22060712 (Version 2)
Quarter: 2023Q4

REPORT INFORMATION
  Report Type: Spontaneous
  Country: CA (occurrence: CA)
  Receive Date: 20230303
  Receipt Date: 20231109
  Transmission Date: 20240110
  Serious: Yes (Death, Other)
  Sender: FDA-Public Use
  Company Number: CA-PFIZER INC-202300089654

PATIENT
  Age: 84 Year
  Sex: Male

DRUGS (1)
  1. VYNDAQEL [Suspect]
     Active Substance: TAFAMIDIS MEGLUMINE
     Indication: Cardiac amyloidosis
     Dosage: 80 MG, DAILY
     Route: 048
     Dates: start: 20230109

REACTIONS (4)
  - Chronic obstructive pulmonary disease [Fatal]
  - Cardiac failure congestive [Fatal]
  - Dyspnoea [Unknown]
  - Influenza [Unknown]

NARRATIVE: CASE EVENT DATE: 20230101
